FAERS Safety Report 9316180 (Version 1)
Quarter: 2013Q2

REPORT INFORMATION
  Report Type: Spontaneous
  Country: US (occurrence: None)
  Receive Date: 20130522
  Receipt Date: 20130522
  Transmission Date: 20140414
  Serious: Yes (Other)
  Sender: FDA-Public Use
  Company Number: KAD201305-000552

PATIENT
  Sex: Female

DRUGS (1)
  1. RIBASPHERE [Suspect]

REACTIONS (4)
  - Pain [None]
  - Contusion [None]
  - Breast swelling [None]
  - Oedema peripheral [None]
